FAERS Safety Report 7732810-7 (Version None)
Quarter: 2011Q3

REPORT INFORMATION
  Report Type: 
  Country: None (occurrence: None)
  Receive Date: 20110902
  Receipt Date: 20110902
  Transmission Date: 20111222
  Serious: Yes (Disabling)
  Sender: FDA-Public Use
  Company Number: None

PATIENT
  Age: 70 Year
  Sex: Female
  Weight: 73.9363 kg

DRUGS (1)
  1. RECLAST [Suspect]
     Indication: BONE DISORDER
     Dosage: 5MG/200 ML 1 TIME
     Dates: start: 20110526

REACTIONS (5)
  - PAIN [None]
  - ARTHRALGIA [None]
  - LOWER LIMB FRACTURE [None]
  - MYALGIA [None]
  - HIP ARTHROPLASTY [None]
